FAERS Safety Report 4951260-X (Version None)
Quarter: 2006Q1

REPORT INFORMATION
  Report Type: 
  Country: None (occurrence: None)
  Receive Date: 20060317
  Receipt Date: 20060308
  Transmission Date: 20060701
  Serious: Yes (Death)
  Sender: FDA-Public Use
  Company Number: DE200603001907

PATIENT
  Age: 57 Year
  Sex: Male

DRUGS (2)
  1. ZYPREXA [Suspect]
     Indication: MAJOR DEPRESSION
     Dosage: DAILY (1/D),
     Dates: start: 20020527
  2. JATROSOM (TRANYLCYPROMINE SULFATE, TRIFLUOPERAZINE HYDROCHLORIDE) [Concomitant]

REACTIONS (2)
  - COMPLETED SUICIDE [None]
  - DROWNING [None]
